FAERS Safety Report 14587044 (Version 2)
Quarter: 2018Q3

REPORT INFORMATION
  Report Type: Spontaneous
  Country: JP (occurrence: JP)
  Receive Date: 20180301
  Receipt Date: 20180808
  Transmission Date: 20181010
  Serious: Yes (Death)
  Sender: FDA-Public Use
  Company Number: JP-ACTELION-A-CH2018-168420

PATIENT
  Age: 53 Year
  Sex: Female
  Weight: 49.4 kg

DRUGS (16)
  1. SOLU?MEDROL [Concomitant]
     Active Substance: METHYLPREDNISOLONE SODIUM SUCCINATE
     Dosage: 1000 MG, QD
     Dates: start: 20180208, end: 20180210
  2. DORMICUM [Concomitant]
     Indication: DEVICE THERAPY
     Dosage: 10 MG, QD
     Dates: start: 20180208, end: 20180213
  3. FENTANYL. [Concomitant]
     Active Substance: FENTANYL
     Indication: DEVICE THERAPY
     Dosage: 0.1 MG, QD
     Dates: start: 20180208, end: 20180208
  4. HUMAN SERUM ALBUMIN [Concomitant]
     Active Substance: ALBUMIN HUMAN
     Dosage: 12.5 G, QD
     Dates: start: 20180209, end: 20180211
  5. RAPIACTA [Concomitant]
     Active Substance: PERAMIVIR
     Indication: PNEUMONIA INFLUENZAL
     Dosage: UNK
     Dates: start: 20180208, end: 20180209
  6. TAKEPRON [Concomitant]
     Active Substance: LANSOPRAZOLE
     Dosage: 30 MG, QD
     Dates: start: 20180208, end: 20180213
  7. NORSPAN [Concomitant]
     Active Substance: BUPRENORPHINE
     Dosage: 5 MG, QD
     Dates: end: 20180213
  8. SIGMART [Concomitant]
     Active Substance: NICORANDIL
     Indication: ANGINA PECTORIS
     Dosage: 15 MG, QD
     Dates: start: 20180208, end: 20180209
  9. INAVIR [Concomitant]
     Indication: PNEUMONIA INFLUENZAL
     Dosage: 40 MG, QD
     Dates: start: 20180208, end: 20180208
  10. PREDONINE [Concomitant]
     Active Substance: PREDNISOLONE
     Dosage: 20 MG, QD
     Dates: end: 20180213
  11. ELASPOL [Concomitant]
     Active Substance: SIVELESTAT SODIUM
     Dosage: 100 MG, QD
     Dates: start: 20180208, end: 20180213
  12. UPTRAVI [Suspect]
     Active Substance: SELEXIPAG
     Indication: PULMONARY ARTERIAL HYPERTENSION
     Dosage: 0.4 MG, QD
     Route: 048
     Dates: start: 20180208, end: 20180213
  13. OPSUMIT [Concomitant]
     Active Substance: MACITENTAN
     Indication: PULMONARY ARTERIAL HYPERTENSION
     Dosage: 10 MG, QD
     Dates: end: 20180210
  14. VENILON [Concomitant]
     Active Substance: HUMAN IMMUNOGLOBULIN G
     Dosage: 5000 MG, QD
     Dates: end: 20180208
  15. PRODIF [Concomitant]
     Active Substance: FOSFLUCONAZOLE
     Dosage: 100 MG, QD
     Dates: start: 20180208, end: 20180213
  16. ZOSYN [Concomitant]
     Active Substance: PIPERACILLIN SODIUM\TAZOBACTAM SODIUM
     Indication: INTERSTITIAL LUNG DISEASE
     Dosage: UNK
     Dates: start: 20180209, end: 20180213

REACTIONS (3)
  - Concomitant disease aggravated [Fatal]
  - Interstitial lung disease [Fatal]
  - Influenza [Fatal]
